FAERS Safety Report 20919451 (Version 2)
Quarter: 2022Q4

REPORT INFORMATION
  Report Type: Spontaneous
  Country: US (occurrence: US)
  Receive Date: 20220606
  Receipt Date: 20221020
  Transmission Date: 20230113
  Serious: No
  Sender: FDA-Public Use
  Company Number: US-PFIZER INC-202200797681

PATIENT

DRUGS (2)
  1. DOXORUBICIN HYDROCHLORIDE [Suspect]
     Active Substance: DOXORUBICIN HYDROCHLORIDE
     Dosage: 50 MG
     Route: 042
  2. DOXORUBICIN HYDROCHLORIDE [Suspect]
     Active Substance: DOXORUBICIN HYDROCHLORIDE
     Dosage: UNK

REACTIONS (7)
  - Product confusion [Unknown]
  - Wrong product administered [Unknown]
  - Incorrect route of product administration [Unknown]
  - Infusion related reaction [Unknown]
  - Flushing [Unknown]
  - Vomiting [Unknown]
  - Hypotension [Unknown]
